FAERS Safety Report 14149203 (Version 2)
Quarter: 2017Q4

REPORT INFORMATION
  Report Type: Report from Study
  Country: IQ (occurrence: IQ)
  Receive Date: 20171101
  Receipt Date: 20171113
  Transmission Date: 20180321
  Serious: Yes (Other)
  Sender: FDA-Public Use
  Company Number: PHHY2015IQ102744

PATIENT
  Age: 43 Year
  Sex: Female

DRUGS (2)
  1. TASIGNA [Suspect]
     Active Substance: NILOTINIB
     Indication: CHRONIC MYELOID LEUKAEMIA
     Dosage: 800 MG, QD
     Route: 048
     Dates: start: 201410
  2. PREGNA [Concomitant]
     Indication: PRODUCT USED FOR UNKNOWN INDICATION
     Dosage: 1 DF, Q12H
     Route: 048

REACTIONS (33)
  - Productive cough [Not Recovered/Not Resolved]
  - Menstrual disorder [Recovered/Resolved]
  - Abdominal pain [Not Recovered/Not Resolved]
  - Granuloma skin [Unknown]
  - Amenorrhoea [Recovered/Resolved]
  - Eating disorder [Unknown]
  - Haemoglobin decreased [Not Recovered/Not Resolved]
  - Hypersensitivity [Recovered/Resolved]
  - Pain in extremity [Unknown]
  - Influenza [Recovered/Resolved]
  - Dyspnoea [Unknown]
  - Anxiety [Not Recovered/Not Resolved]
  - Swelling [Unknown]
  - Irritable bowel syndrome [Unknown]
  - Anaemia [Not Recovered/Not Resolved]
  - Erythema [Recovered/Resolved]
  - Skin disorder [Recovered/Resolved]
  - Rash [Recovered/Resolved]
  - Hypertension [Recovering/Resolving]
  - Immunodeficiency [Unknown]
  - Constipation [Unknown]
  - Ovarian cyst [Unknown]
  - Renal pain [Unknown]
  - Stress at work [Unknown]
  - Arthralgia [Not Recovered/Not Resolved]
  - Cough [Recovered/Resolved]
  - Oropharyngeal pain [Unknown]
  - Cytogenetic analysis abnormal [Recovering/Resolving]
  - Nephrolithiasis [Recovered/Resolved]
  - Nervousness [Not Recovered/Not Resolved]
  - Hypoaesthesia [Unknown]
  - Abdominal distension [Not Recovered/Not Resolved]
  - Fatigue [Not Recovered/Not Resolved]

NARRATIVE: CASE EVENT DATE: 201604
